FAERS Safety Report 6417730-2 (Version None)
Quarter: 2009Q4

REPORT INFORMATION
  Report Type: 
  Country: None (occurrence: None)
  Receive Date: 20091027
  Receipt Date: 20091027
  Transmission Date: 20100525
  Serious: Yes (Hospitalization)
  Sender: FDA-Public Use
  Company Number: None

PATIENT
  Age: 71 Year
  Sex: Male
  Weight: 74 kg

DRUGS (14)
  1. METFORMIN HCL [Suspect]
     Dosage: 1 GM X 4 PO
     Route: 048
     Dates: start: 20090902
  2. GLIPIZIDE [Suspect]
     Dosage: 10MG X 2 PO
     Route: 048
     Dates: start: 20090902
  3. NIFEDIPINE [Concomitant]
  4. FUROSEMIDE [Concomitant]
  5. MECLIZINE [Concomitant]
  6. DOCUSATE [Concomitant]
  7. OMEPRAZOLE [Concomitant]
  8. OXYCODONE [Concomitant]
  9. ENALAPRIL [Concomitant]
  10. OXYCODONE HCL EXTENDED-RELEASE [Concomitant]
  11. SODIUM CHLORIDE [Concomitant]
  12. EPOGEN [Concomitant]
  13. ONDANSETRON [Concomitant]
  14. PREDNISONE TAB [Concomitant]

REACTIONS (3)
  - DRUG DISPENSING ERROR [None]
  - HYPOGLYCAEMIC UNCONSCIOUSNESS [None]
  - WRONG DRUG ADMINISTERED [None]
